FAERS Safety Report 4349799-3 (Version None)
Quarter: 2004Q2

REPORT INFORMATION
  Report Type: 
  Country: None (occurrence: None)
  Receive Date: 20040429
  Receipt Date: 20040318
  Transmission Date: 20050107
  Serious: Yes (Death, Hospitalization)
  Sender: FDA-Public Use
  Company Number: US-BRISTOL-MYERS SQUIBB COMPANY-12536470

PATIENT
  Age: 57 Year
  Sex: Female
  Weight: 94 kg

DRUGS (9)
  1. CARBOPLATIN [Suspect]
     Indication: FALLOPIAN TUBE CANCER
     Dosage: EACH INFUSION OVER 30-40 MINUTES
     Route: 042
     Dates: start: 20040310, end: 20040310
  2. DECADRON [Concomitant]
     Indication: PREMEDICATION
     Dates: start: 20040310, end: 20040310
  3. ANZEMET [Concomitant]
     Indication: PREMEDICATION
     Dates: start: 20040310, end: 20040310
  4. COMPAZINE [Concomitant]
     Indication: NAUSEA
  5. PREVACID [Concomitant]
  6. LASIX [Concomitant]
  7. SYNTHROID [Concomitant]
  8. LORTAB [Concomitant]
  9. VALIUM [Concomitant]

REACTIONS (2)
  - HYPERSENSITIVITY [None]
  - MYOCARDIAL INFARCTION [None]
